FAERS Safety Report 9669670 (Version 1)
Quarter: 2013Q4

REPORT INFORMATION
  Report Type: Spontaneous
  Country: IT (occurrence: IT)
  Receive Date: 20131105
  Receipt Date: 20131105
  Transmission Date: 20140711
  Serious: Yes (Other)
  Sender: FDA-Public Use
  Company Number: IT-SHIRE-ALL1-2013-07334

PATIENT
  Age: 30 Year
  Sex: Male

DRUGS (1)
  1. XAGRID [Suspect]
     Indication: ESSENTIAL THROMBOCYTHAEMIA
     Dosage: OTHER 6-7/ 0.5MG CAPSULES EACH DAY
     Route: 048
     Dates: start: 2011

REACTIONS (3)
  - Humerus fracture [Unknown]
  - Impaired healing [Not Recovered/Not Resolved]
  - Road traffic accident [Recovered/Resolved]
